FAERS Safety Report 4574362-9 (Version None)
Quarter: 2005Q1

REPORT INFORMATION
  Report Type: 
  Country: None (occurrence: None)
  Receive Date: 20050208
  Receipt Date: 20041209
  Transmission Date: 20050727
  Serious: No
  Sender: FDA-Public Use
  Company Number: US-GLAXOSMITHKLINE-A0536779A

PATIENT
  Age: 55 Year
  Sex: Female

DRUGS (3)
  1. PAXIL [Suspect]
     Route: 048
  2. CENTRUM [Concomitant]
     Indication: VITAMIN SUPPLEMENTATION
  3. PREMARIN [Concomitant]

REACTIONS (15)
  - ANXIETY [None]
  - CONTUSION [None]
  - DISSOCIATION [None]
  - DIZZINESS [None]
  - DRY MOUTH [None]
  - DYSPHAGIA [None]
  - EMOTIONAL DISORDER [None]
  - FLUSHING [None]
  - HYPERHIDROSIS [None]
  - PAIN [None]
  - PRURITUS [None]
  - SWELLING [None]
  - VISION BLURRED [None]
  - WEIGHT INCREASED [None]
  - YAWNING [None]
